FAERS Safety Report 6156728-9 (Version None)
Quarter: 2009Q2

REPORT INFORMATION
  Report Type: 
  Country: None (occurrence: None)
  Receive Date: 20090413
  Receipt Date: 20090121
  Transmission Date: 20091009
  Serious: Yes (Other)
  Sender: FDA-Public Use
  Company Number: IMP_04230_2009

PATIENT
  Age: 40 Year
  Sex: Male

DRUGS (4)
  1. BUPROPION HCL [Suspect]
     Indication: DISTURBANCE IN ATTENTION
     Dosage: ORAL
     Route: 048
     Dates: start: 20081201, end: 20090101
  2. BUPROPION HCL [Suspect]
     Indication: DISTURBANCE IN ATTENTION
     Dosage: (150 MG QD ORAL), (150 MG QOD ORAL)
     Route: 048
     Dates: start: 20081201, end: 20081201
  3. BUPROPION HCL [Suspect]
     Indication: DISTURBANCE IN ATTENTION
     Dosage: (150 MG QD ORAL), (150 MG QOD ORAL)
     Route: 048
     Dates: start: 20090101
  4. DAILY VITAMINS [Concomitant]

REACTIONS (12)
  - ADVERSE REACTION [None]
  - APPETITE DISORDER [None]
  - DEAFNESS [None]
  - DIZZINESS [None]
  - DRUG INEFFECTIVE FOR UNAPPROVED INDICATION [None]
  - HEADACHE [None]
  - MUSCULOSKELETAL STIFFNESS [None]
  - NAUSEA [None]
  - PRODUCT QUALITY ISSUE [None]
  - TINNITUS [None]
  - TREMOR [None]
  - WEIGHT DECREASED [None]
